FAERS Safety Report 9334295 (Version 3)
Quarter: 2016Q4

REPORT INFORMATION
  Report Type: Spontaneous
  Country: US (occurrence: US)
  Receive Date: 20130606
  Receipt Date: 20161101
  Transmission Date: 20170207
  Serious: Yes (Hospitalization, Other)
  Sender: FDA-Public Use
  Company Number: US-009507513-1305USA017098

PATIENT
  Sex: Female
  Weight: 39.91 kg

DRUGS (3)
  1. FOSAMAX [Suspect]
     Active Substance: ALENDRONATE SODIUM
     Indication: OSTEOPOROSIS
     Dosage: 10 MG, QD
     Route: 048
     Dates: start: 1996, end: 200807
  2. VITAMIN D [Suspect]
     Active Substance: CHOLECALCIFEROL
     Indication: ROUTINE HEALTH MAINTENANCE
     Dosage: UNK, UNKNOWN
     Route: 065
  3. ALENDRONATE SODIUM. [Suspect]
     Active Substance: ALENDRONATE SODIUM
     Indication: OSTEOPOROSIS
     Dosage: 10 MG, QD
     Route: 048
     Dates: start: 20080719, end: 20110619

REACTIONS (11)
  - Cholelithiasis [Unknown]
  - Hypertension [Recovered/Resolved]
  - Spinal osteoarthritis [Unknown]
  - Anaemia postoperative [Recovered/Resolved]
  - Femur fracture [Unknown]
  - Stress fracture [Unknown]
  - Tooth loss [Unknown]
  - Flushing [Recovered/Resolved]
  - Insulinoma [Unknown]
  - Carcinoid syndrome [Unknown]
  - Dyspepsia [Unknown]

NARRATIVE: CASE EVENT DATE: 1998
